FAERS Safety Report 4714627-0 (Version None)
Quarter: 2005Q3

REPORT INFORMATION
  Report Type: 
  Country: None (occurrence: None)
  Receive Date: 20050714
  Receipt Date: 20050629
  Transmission Date: 20060218
  Serious: Yes (Death)
  Sender: FDA-Public Use
  Company Number: 2005S1005652

PATIENT
  Age: 45 Year
  Sex: Male

DRUGS (2)
  1. CLOZAPINE [Suspect]
     Dosage: 350 MG; HS; PO; 200 MG; QAM; PO
     Route: 048
     Dates: start: 20040901, end: 20050601
  2. CLOZAPINE [Suspect]
     Dosage: 350 MG; HS; PO; 200 MG; QAM; PO
     Route: 048
     Dates: start: 20040901, end: 20050601

REACTIONS (1)
  - DEATH [None]
